FAERS Safety Report 4518964-4 (Version None)
Quarter: 2004Q4

REPORT INFORMATION
  Report Type: 
  Country: None (occurrence: None)
  Receive Date: 20041201
  Receipt Date: 20041118
  Transmission Date: 20050328
  Serious: Yes (Other)
  Sender: FDA-Public Use
  Company Number: 2004096022

PATIENT
  Age: 38 Year
  Sex: Female
  Weight: 113 kg

DRUGS (10)
  1. GABAPENTIN [Suspect]
     Indication: MIGRAINE
     Dosage: (1500 MG), ORAL
     Route: 048
     Dates: start: 20041022
  2. BECLOMETHASONE DIPROPIONATE [Concomitant]
  3. ACETAMINOPHEN [Concomitant]
  4. ............ [Concomitant]
  5. SALMETEROL (SALMETEROL) [Concomitant]
  6. TRAMADOL HCL [Concomitant]
  7. SUMATRIPTAN (SUMATRIPTAN) [Concomitant]
  8. CYCLIZINE (CYCLIZINE) [Concomitant]
  9. DIPIPANONE (DIPIPANONE) [Concomitant]
  10. FLUOXETINE (FLOXETINE) [Concomitant]

REACTIONS (1)
  - HALLUCINATION, AUDITORY [None]
